FAERS Safety Report 23812757 (Version 7)
Quarter: 2024Q3

REPORT INFORMATION
  Report Type: Report from Study
  Country: GB (occurrence: GB)
  Receive Date: 20240503
  Receipt Date: 20240909
  Transmission Date: 20241016
  Serious: Yes (Hospitalization)
  Sender: ABBVIE
  Company Number: GB-ABBVIE-5545308

PATIENT
  Age: 66 Year
  Sex: Male

DRUGS (15)
  1. CARBIDOPA\LEVODOPA [Suspect]
     Active Substance: CARBIDOPA\LEVODOPA
     Indication: Parkinson^s disease
     Dosage: MD: 14.0 MLS, CR: 4.1 MLS /HR, ED: 2.3 MLS, 20MG/5MG?LAST ADMIN DATE DEC 2023
     Route: 050
     Dates: start: 20231211
  2. CARBIDOPA\LEVODOPA [Suspect]
     Active Substance: CARBIDOPA\LEVODOPA
     Dosage: MD: 14.0 MLS, CR: 4.2 MLS /HR, ED: 2.3 MLS, 20MG/5MG
     Route: 050
     Dates: start: 202312, end: 20231211
  3. CARBIDOPA\LEVODOPA [Suspect]
     Active Substance: CARBIDOPA\LEVODOPA
     Dosage: CR 4.0MLS/HR FROM 1300
     Route: 050
     Dates: start: 202312, end: 202312
  4. CARBIDOPA\LEVODOPA [Suspect]
     Active Substance: CARBIDOPA\LEVODOPA
     Dosage: MD 14.5MLS ED 2.3MLS CR 4.1MLS?FREQUENCY TEXT: 1 AT 00.00.HRS, 03.00 AM AND 06.00 AM, STOP DATE: ...
     Route: 050
     Dates: start: 202312
  5. CARBIDOPA\LEVODOPA [Suspect]
     Active Substance: CARBIDOPA\LEVODOPA
     Dosage: MD: 14.5, CR: 4.1, ED: 2.3
     Route: 050
     Dates: start: 2023, end: 2023
  6. CARBIDOPA\LEVODOPA [Suspect]
     Active Substance: CARBIDOPA\LEVODOPA
     Dosage: MD: 14.3MLS  CR:  4.1 MLS/HR  ED: 2.3 MLS
     Route: 050
     Dates: start: 2023, end: 2023
  7. CARBIDOPA\LEVODOPA [Suspect]
     Active Substance: CARBIDOPA\LEVODOPA
     Dosage: NIGHT TIME PUMP SETTINGS: C.R: 2.8MLS E.D 2.0MLS (2HR LOCK OUT)
     Route: 050
     Dates: start: 2024, end: 2024
  8. CARBIDOPA\LEVODOPA [Suspect]
     Active Substance: CARBIDOPA\LEVODOPA
     Dosage: DAY PUMP (8AM-MIDNIGHT): CR 4.2MLS/HR, ED 2.3MLS / NIGHT (MIDNIGHT - 8AM): CR 2.8MLS/HR, ED 2.0ML...
     Route: 050
     Dates: start: 2024, end: 2024
  9. CARBIDOPA\LEVODOPA [Suspect]
     Active Substance: CARBIDOPA\LEVODOPA
     Dosage: MD: 14.5, CR: 4.2, ED= 2.3MLS,LL0 /NIGHT-TIME MD= 3.0MLS, CR: 3.0MLS/HR, ED:2.3
     Route: 050
     Dates: start: 2024, end: 202407
  10. CARBIDOPA\LEVODOPA [Suspect]
     Active Substance: CARBIDOPA\LEVODOPA
     Dosage: MD: 14.5, CR: 4.2 /NIGHT-TIME CR: 3.3 MLS/HR, ED:2.3
     Route: 050
     Dates: start: 202407, end: 20240903
  11. CARBIDOPA\LEVODOPA [Suspect]
     Active Substance: CARBIDOPA\LEVODOPA
     Dosage: REDUCE MD TO 10.0 MLS
     Route: 050
     Dates: start: 20240903
  12. BENSERAZIDE HYDROCHLORIDE\LEVODOPA [Concomitant]
     Active Substance: BENSERAZIDE HYDROCHLORIDE\LEVODOPA
     Indication: Product used for unknown indication
     Dosage: 25/100MGS X1?FREQUENCY TEXT: 1 AT 00.00.HRS, 03.00 AM AND 06.00 AM
  13. BENSERAZIDE HYDROCHLORIDE\LEVODOPA [Concomitant]
     Active Substance: BENSERAZIDE HYDROCHLORIDE\LEVODOPA
     Indication: Product used for unknown indication
     Dosage: 25/100 MGS X1, FREQUENCY TEXT: 1 AT 00.00.HRS, 03.00 AM AND 06.00 AM
  14. BENSERAZIDE HYDROCHLORIDE\LEVODOPA [Concomitant]
     Active Substance: BENSERAZIDE HYDROCHLORIDE\LEVODOPA
     Indication: Product used for unknown indication
     Dosage: UP TO 4 MADOPAR DISPERSIBLE 62.5MG AT NIGHT
     Route: 048
  15. BENSERAZIDE HYDROCHLORIDE\LEVODOPA [Concomitant]
     Active Substance: BENSERAZIDE HYDROCHLORIDE\LEVODOPA
     Indication: Product used for unknown indication
     Dosage: MADOPAR CAPSULES 100/25MG THREE TIMES A DAY

REACTIONS (31)
  - Stoma site infection [Not Recovered/Not Resolved]
  - Device dislocation [Recovered/Resolved]
  - Weight decreased [Recovered/Resolved]
  - Dyskinesia [Not Recovered/Not Resolved]
  - Disturbance in attention [Unknown]
  - Stoma site infection [Not Recovered/Not Resolved]
  - Hospitalisation [Unknown]
  - Compulsions [Recovering/Resolving]
  - Muscle rigidity [Recovering/Resolving]
  - Freezing phenomenon [Unknown]
  - Stoma site reaction [Recovering/Resolving]
  - Dystonia [Recovering/Resolving]
  - Unevaluable event [Unknown]
  - Insomnia [Recovering/Resolving]
  - General symptom [Unknown]
  - Musculoskeletal chest pain [Not Recovered/Not Resolved]
  - Pain in extremity [Unknown]
  - Malaise [Unknown]
  - Device occlusion [Recovered/Resolved]
  - On and off phenomenon [Recovering/Resolving]
  - Dyspnoea [Unknown]
  - Device occlusion [Not Recovered/Not Resolved]
  - Stoma site erythema [Unknown]
  - Hallucination [Unknown]
  - Device alarm issue [Recovered/Resolved]
  - Stoma site discharge [Not Recovered/Not Resolved]
  - Weight decreased [Recovered/Resolved]
  - Stoma site pain [Not Recovered/Not Resolved]
  - Device leakage [Unknown]
  - Depressed mood [Recovering/Resolving]
  - Depression [Recovering/Resolving]

NARRATIVE: CASE EVENT DATE: 20230101
